FAERS Safety Report 8957147 (Version 1)
Quarter: 2012Q4

REPORT INFORMATION
  Report Type: 
  Country: IL (occurrence: IL)
  Receive Date: 20121210
  Receipt Date: 20121210
  Transmission Date: 20130627
  Serious: Yes (Hospitalization, Other)
  Sender: FDA-Public Use
  Company Number: IL-CELGENEUS-082-20785-12113860

PATIENT
  Age: 12 Year
  Sex: Female

DRUGS (3)
  1. THALIDOMIDE CELGENE [Suspect]
     Indication: EPENDYMOMA
     Route: 048
  2. THALIDOMIDE CELGENE [Suspect]
     Route: 048
  3. THALIDOMIDE CELGENE [Suspect]
     Route: 048

REACTIONS (4)
  - Coma [Recovered/Resolved]
  - Incorrect dose administered [Recovered/Resolved]
  - Hypotension [Recovered/Resolved]
  - Pyrexia [Recovered/Resolved]
